FAERS Safety Report 6887580-1 (Version None)
Quarter: 2010Q3

REPORT INFORMATION
  Report Type: 
  Country: None (occurrence: None)
  Receive Date: 20100727
  Receipt Date: 20100714
  Transmission Date: 20110219
  Serious: Yes (Other)
  Sender: FDA-Public Use
  Company Number: AU-1182637

PATIENT
  Age: 89 Year
  Sex: Female

DRUGS (9)
  1. TRAVATAN [Suspect]
     Route: 047
  2. PRAVASTATIN [Concomitant]
  3. OMEPRAZOLE [Concomitant]
  4. ASPIRIN [Concomitant]
  5. FUROSEMIDE [Concomitant]
  6. TEMAZEPAM [Concomitant]
  7. VERAPAMIL [Concomitant]
  8. CELECOXIB [Concomitant]
  9. IRBESARTAN [Concomitant]

REACTIONS (1)
  - HALLUCINATION, VISUAL [None]
